FAERS Safety Report 17508415 (Version 1)
Quarter: 2020Q1

REPORT INFORMATION
  Report Type: Spontaneous
  Country: JP (occurrence: JP)
  Receive Date: 20200306
  Receipt Date: 20200306
  Transmission Date: 20200409
  Serious: Yes (Hospitalization)
  Sender: FDA-Public Use
  Company Number: JP-STRIDES ARCOLAB LIMITED-2020SP001835

PATIENT
  Sex: Female

DRUGS (3)
  1. LIDOCAINE. [Suspect]
     Active Substance: LIDOCAINE
     Dosage: UNK, PATCHES
     Route: 061
  2. LIDOCAINE. [Suspect]
     Active Substance: LIDOCAINE
     Dosage: 0.3-2.0 MG/KG/HR CONTINUOUS IV INJECTION
     Route: 042
  3. LIDOCAINE. [Suspect]
     Active Substance: LIDOCAINE
     Indication: NEONATAL ASPHYXIA
     Dosage: 1 MG/KG/HR CONTINUOUS IV INFUSION FOR 24 HOURS IN TOTAL
     Route: 042

REACTIONS (9)
  - Crying [Unknown]
  - Epilepsy [Recovered/Resolved]
  - Hyperuricaemia [Recovered/Resolved]
  - Off label use [Unknown]
  - Muscle spasms [Unknown]
  - Hyperhidrosis [Recovered/Resolved]
  - Dyskinesia [Unknown]
  - Early infantile epileptic encephalopathy with burst-suppression [Unknown]
  - Mood altered [Recovered/Resolved]
